FAERS Safety Report 21091921 (Version 1)
Quarter: 2022Q3

REPORT INFORMATION
  Report Type: Spontaneous
  Country: ES (occurrence: None)
  Receive Date: 20220717
  Receipt Date: 20220717
  Transmission Date: 20221026
  Serious: Yes (Hospitalization)
  Sender: FDA-Public Use
  Company Number: 2022A251175

PATIENT
  Age: 55 Year
  Sex: Female
  Weight: 117 kg

DRUGS (6)
  1. DAPAGLIFLOZIN PROPANEDIOL\METFORMIN HYDROCHLORIDE [Suspect]
     Active Substance: DAPAGLIFLOZIN PROPANEDIOL\METFORMIN HYDROCHLORIDE
     Indication: Diabetes mellitus
     Dosage: 1 TABLET EVERY 12 HOURS
     Route: 065
     Dates: start: 20181109
  2. TRULICITY [Concomitant]
     Active Substance: DULAGLUTIDE
     Indication: Diabetes mellitus
     Dosage: 1 CARTRIDGE/PEN EVERY 7 DAYS
     Route: 065
     Dates: start: 20200623
  3. CALCIFEDIOL [Concomitant]
     Active Substance: CALCIFEDIOL
     Dosage: 1 CAPSULE EVERY 30 DAYS
     Route: 065
     Dates: start: 20210514
  4. ENALAPRIL [Concomitant]
     Active Substance: ENALAPRIL
     Indication: Hypertension
     Dosage: 1 TABLET EVERY 12 HOURS
     Route: 065
     Dates: start: 20190322
  5. URSOBILANE [Concomitant]
     Indication: Cholelithiasis
     Dosage: 1 CAPSULE EVERY DAY
     Route: 065
     Dates: start: 20190322
  6. PIOGLITAZONE HYDROCHLORIDE [Concomitant]
     Active Substance: PIOGLITAZONE HYDROCHLORIDE
     Indication: Diabetes mellitus
     Dosage: 1 TABLET EACH DAY
     Route: 065

REACTIONS (3)
  - Candida infection [Unknown]
  - Diabetic ketoacidosis [Recovered/Resolved]
  - Pyelonephritis acute [Recovering/Resolving]

NARRATIVE: CASE EVENT DATE: 20210616
